FAERS Safety Report 9435509 (Version 1)
Quarter: 2013Q3

REPORT INFORMATION
  Report Type: Spontaneous
  Country: US (occurrence: None)
  Receive Date: 20130730
  Receipt Date: 20130730
  Transmission Date: 20140515
  Serious: Yes (Hospitalization)
  Sender: FDA-Public Use
  Company Number: USA/USA/13/0033595

PATIENT
  Age: 53 Year
  Sex: Male

DRUGS (1)
  1. IBUPROFEN (IBUPROFEN) [Suspect]
     Indication: BACK PAIN

REACTIONS (16)
  - Intentional overdose [None]
  - Metabolic acidosis [None]
  - Renal failure [None]
  - Cardiac arrest [None]
  - Meningitis staphylococcal [None]
  - Pneumonia [None]
  - Pleural effusion [None]
  - Atelectasis [None]
  - Inappropriate antidiuretic hormone secretion [None]
  - Respiratory alkalosis [None]
  - Hypertension [None]
  - Pulseless electrical activity [None]
  - Septic shock [None]
  - Hepatic steatosis [None]
  - Bacteraemia [None]
  - Asthenia [None]
